FAERS Safety Report 17672776 (Version 1)
Quarter: 2020Q2

REPORT INFORMATION
  Report Type: Spontaneous
  Country: US (occurrence: US)
  Receive Date: 20200415
  Receipt Date: 20200415
  Transmission Date: 20200713
  Serious: No
  Sender: FDA-Public Use
  Company Number: US-ALKERMES INC.-ALK-2019-004792

PATIENT
  Age: 64 Year
  Sex: Male
  Weight: 95.24 kg

DRUGS (13)
  1. XANAX [Concomitant]
     Active Substance: ALPRAZOLAM
     Indication: FEELING ABNORMAL
     Dosage: UNK
     Route: 065
  2. XANAX [Concomitant]
     Active Substance: ALPRAZOLAM
     Indication: SUBSTANCE USE
  3. XANAX [Concomitant]
     Active Substance: ALPRAZOLAM
     Indication: HYPERSOMNIA
  4. XANAX [Concomitant]
     Active Substance: ALPRAZOLAM
     Indication: NAUSEA
  5. XANAX [Concomitant]
     Active Substance: ALPRAZOLAM
     Indication: THINKING ABNORMAL
  6. XANAX [Concomitant]
     Active Substance: ALPRAZOLAM
     Indication: ASTHENIA
  7. XANAX [Concomitant]
     Active Substance: ALPRAZOLAM
     Indication: GAIT DISTURBANCE
  8. XANAX [Concomitant]
     Active Substance: ALPRAZOLAM
     Indication: TREMOR
  9. EFFEXOR [Concomitant]
     Active Substance: VENLAFAXINE HYDROCHLORIDE
     Indication: ANXIETY
     Dosage: UNK
     Route: 065
     Dates: end: 201909
  10. VIVITROL [Suspect]
     Active Substance: NALTREXONE
     Indication: DRUG DEPENDENCE
     Dosage: 380 MG, QMO
     Route: 030
     Dates: start: 20190907
  11. XANAX [Concomitant]
     Active Substance: ALPRAZOLAM
     Indication: CRYING
  12. XANAX [Concomitant]
     Active Substance: ALPRAZOLAM
     Indication: INSOMNIA
  13. XANAX [Concomitant]
     Active Substance: ALPRAZOLAM
     Indication: ANXIETY
     Dosage: UNK
     Route: 065

REACTIONS (12)
  - Asthenia [Not Recovered/Not Resolved]
  - Thinking abnormal [Not Recovered/Not Resolved]
  - Apathy [Not Recovered/Not Resolved]
  - Feeling abnormal [Not Recovered/Not Resolved]
  - Gait disturbance [Not Recovered/Not Resolved]
  - Substance use [Not Recovered/Not Resolved]
  - Hypersomnia [Not Recovered/Not Resolved]
  - Tremor [Not Recovered/Not Resolved]
  - Drug dependence [Not Recovered/Not Resolved]
  - Crying [Not Recovered/Not Resolved]
  - Nausea [Not Recovered/Not Resolved]
  - Insomnia [Not Recovered/Not Resolved]

NARRATIVE: CASE EVENT DATE: 20190907
